FAERS Safety Report 4645965-8 (Version None)
Quarter: 2005Q2

REPORT INFORMATION
  Report Type: 
  Country: None (occurrence: None)
  Receive Date: 20050425
  Receipt Date: 20050415
  Transmission Date: 20051028
  Serious: Yes (Other)
  Sender: FDA-Public Use
  Company Number: 200510685BWH

PATIENT
  Age: 27 Year
  Sex: Male
  Weight: 93.8946 kg

DRUGS (2)
  1. LEVITRA [Suspect]
     Indication: ERECTILE DYSFUNCTION
     Dosage: 10 MG, BIW, ORAL
     Route: 048
     Dates: start: 20040701
  2. ZYRTEC [Concomitant]

REACTIONS (1)
  - RENAL FAILURE [None]
